FAERS Safety Report 19874467 (Version 1)
Quarter: 2021Q3

REPORT INFORMATION
  Report Type: Spontaneous
  Country: SE (occurrence: SE)
  Receive Date: 20210923
  Receipt Date: 20210923
  Transmission Date: 20211014
  Serious: Yes (Hospitalization, Other)
  Sender: FDA-Public Use
  Company Number: SE-MYLANLABS-2021M1064015

PATIENT
  Age: 24880 Day
  Sex: Female
  Weight: 85 kg

DRUGS (3)
  1. NAPROXEN. [Suspect]
     Active Substance: NAPROXEN
     Indication: PRODUCT USED FOR UNKNOWN INDICATION
     Dosage: 500 MILLIGRAM 12 HOURS
  2. EPROSARTAN [Concomitant]
     Active Substance: EPROSARTAN
     Dosage: UNK
  3. SIMVASTATIN. [Concomitant]
     Active Substance: SIMVASTATIN
     Dosage: UNK

REACTIONS (6)
  - Gastric ulcer haemorrhage [Recovered/Resolved]
  - Nausea [Unknown]
  - Haematochezia [Unknown]
  - Musculoskeletal chest pain [Unknown]
  - Duodenal ulcer [Unknown]
  - Abdominal pain upper [Unknown]

NARRATIVE: CASE EVENT DATE: 20210403
